FAERS Safety Report 6195710-2 (Version None)
Quarter: 2009Q2

REPORT INFORMATION
  Report Type: 
  Country: None (occurrence: None)
  Receive Date: 20090520
  Receipt Date: 20070904
  Transmission Date: 20091009
  Serious: Yes (Hospitalization, Other)
  Sender: FDA-Public Use
  Company Number: US-ASTRAZENECA-2006UW24759

PATIENT
  Age: 15841 Day
  Sex: Female
  Weight: 60.6 kg

DRUGS (37)
  1. SEROQUEL [Suspect]
     Indication: MENTAL DISORDER
     Dosage: 100 MG/300 MG
     Route: 048
  2. SEROQUEL [Suspect]
     Indication: SUICIDAL IDEATION
     Dosage: 100 MG/300 MG
     Route: 048
  3. SEROQUEL [Suspect]
     Dosage: 12.5 MG-400 MG
     Route: 048
     Dates: start: 20031117
  4. SEROQUEL [Suspect]
     Dosage: 12.5 MG-400 MG
     Route: 048
     Dates: start: 20031117
  5. CLOZARIL [Concomitant]
     Route: 065
  6. GEODON [Concomitant]
     Dosage: 60 MG DAILY, 120 MG DAILY
     Route: 065
  7. TRAZODONE HCL [Concomitant]
     Route: 065
  8. TRICOR [Concomitant]
     Indication: HYPERLIPIDAEMIA
     Dosage: 48 MG-160 MG
     Route: 048
  9. GABITRIL [Concomitant]
     Route: 048
  10. GABITRIL [Concomitant]
     Route: 048
  11. VICODIN [Concomitant]
     Indication: OSTEOARTHRITIS
     Dosage: 5 MG-500 MG AS OCCASION REQUIRES
     Route: 048
  12. EFFEXOR XR [Concomitant]
     Dosage: 75 MG TID, 300 MG EVERY MORNING, 150 MG DAILY
     Route: 048
  13. METFORMIN HCL [Concomitant]
     Dosage: 500 MG BID, 1000 MG BID, 850 MG BID
     Route: 048
  14. LISINOPRIL [Concomitant]
     Route: 048
  15. ATIVAN [Concomitant]
     Indication: SLEEP DISORDER
     Dosage: 0.25 MG TID, 0.25 MG BID, 0.25 MG DAILY, 0.5 MG BID, 0.5 MG QID, 1 MG AS REQUIRED, 2 MG DAILY
     Route: 048
  16. COUMADIN [Concomitant]
     Indication: PULMONARY EMBOLISM
     Dosage: 5 MG ONCE DAILY, ALTERNATING DOSES OF 5 MG AND 7.5 MG DAILY, 7.5 MG DAILY
     Route: 048
     Dates: end: 20040819
  17. VIOXX [Concomitant]
     Indication: OSTEOARTHRITIS
     Dosage: 50 MG DAILY, 25 MG DAILY, 20 MG DAILY
     Route: 048
     Dates: end: 20041020
  18. DYAZIDE [Concomitant]
     Indication: HYPERTENSION
     Dosage: 25 MG-37.5 MG ONCE DAILY
     Route: 048
  19. ALPRAZOLAM [Concomitant]
     Indication: ANXIETY
     Dosage: 0.25 MG BID, 0.25 MG OD, 0.25 MG AS OCCASION REQUIRES
     Route: 048
  20. AMBIEN [Concomitant]
     Dosage: 10 MG OD, 10 MG AS OCCASION REQUIRES
     Route: 048
  21. ZOLOFT [Concomitant]
     Dosage: 200 MG DAILY, 100 MG
     Route: 048
  22. SYNTHROID [Concomitant]
     Indication: HYPOTHYROIDISM
     Dosage: 0.112 MG DAILY
     Route: 048
     Dates: start: 19970101
  23. SIMVASTATIN [Concomitant]
     Route: 065
  24. RAMIPRIL [Concomitant]
     Route: 065
  25. TRIAMCINOLONE [Concomitant]
     Indication: ECZEMA
     Route: 061
  26. TRIAMTERENE [Concomitant]
     Dosage: 25 MG-37.5 MG
     Route: 065
  27. MULTI-VITAMINS [Concomitant]
     Dosage: 1 TABLET DAILY
     Route: 065
  28. MAALOX [Concomitant]
     Route: 065
  29. ACETAMINOPHEN [Concomitant]
     Route: 065
     Dates: end: 20030517
  30. DOCUSATE SODIUM [Concomitant]
     Route: 065
  31. DOCUSATE SODIUM [Concomitant]
     Route: 065
  32. FUROSEMIDE [Concomitant]
     Route: 065
  33. CELEBREX [Concomitant]
     Dosage: 20 MG DAILY, 100 MG BID
     Route: 048
  34. POTASSIUM CL [Concomitant]
     Route: 065
  35. PRILOSEC [Concomitant]
     Dosage: 20 MG DAILY, 40 MG OD
     Route: 048
  36. CYCLOBENZAPRINE [Concomitant]
     Route: 065
  37. LOVENOX [Concomitant]
     Dosage: 100 MG BID, 1 MG PER KG ONCE IN 12 HOURS
     Route: 058

REACTIONS (35)
  - ABDOMINAL PAIN LOWER [None]
  - BACK PAIN [None]
  - BIOPSY SKIN [None]
  - DIABETIC KETOACIDOSIS [None]
  - DIZZINESS [None]
  - DYSPEPSIA [None]
  - DYSPNOEA [None]
  - DYSURIA [None]
  - EPICONDYLITIS [None]
  - GASTROENTERITIS VIRAL [None]
  - GASTROOESOPHAGEAL REFLUX DISEASE [None]
  - GROIN PAIN [None]
  - HAEMATOCHEZIA [None]
  - HAEMORRHOIDS [None]
  - HYPERKERATOSIS [None]
  - HYPERTRIGLYCERIDAEMIA [None]
  - HYPOAESTHESIA [None]
  - HYPOKALAEMIA [None]
  - HYPOXIA [None]
  - IRON DEFICIENCY ANAEMIA [None]
  - METABOLIC SYNDROME [None]
  - MUSCLE SPASMS [None]
  - NECK PAIN [None]
  - OEDEMA PERIPHERAL [None]
  - PAIN IN EXTREMITY [None]
  - POLYP COLORECTAL [None]
  - PULMONARY EMBOLISM [None]
  - SKIN ULCER [None]
  - SLEEP APNOEA SYNDROME [None]
  - SUICIDAL IDEATION [None]
  - TYPE 2 DIABETES MELLITUS [None]
  - UTERINE HAEMORRHAGE [None]
  - VAGINAL DISCHARGE [None]
  - VIRAL INFECTION [None]
  - VULVOVAGINAL PRURITUS [None]
